FAERS Safety Report 4472897-0 (Version None)
Quarter: 2004Q4

REPORT INFORMATION
  Report Type: 
  Country: None (occurrence: None)
  Receive Date: 20041012
  Receipt Date: 20041012
  Transmission Date: 20050328
  Serious: Yes (Hospitalization)
  Sender: FDA-Public Use
  Company Number: None

PATIENT
  Sex: Female
  Weight: 94.3482 kg

DRUGS (1)
  1. LIPITOR [Suspect]
     Indication: HYPERCHOLESTEROLAEMIA
     Dosage: 10 MG ONCE A DAY ORAL
     Route: 048
     Dates: start: 20040824, end: 20040905

REACTIONS (2)
  - RASH ERYTHEMATOUS [None]
  - RASH PRURITIC [None]
